FAERS Safety Report 17846528 (Version 1)
Quarter: 2020Q2

REPORT INFORMATION
  Report Type: Spontaneous
  Country: US (occurrence: US)
  Receive Date: 20200601
  Receipt Date: 20200601
  Transmission Date: 20200714
  Serious: Yes (Other)
  Sender: FDA-Public Use
  Company Number: None

PATIENT
  Age: 65 Year
  Sex: Male
  Weight: 65.25 kg

DRUGS (1)
  1. SILODOSIN. [Suspect]
     Active Substance: SILODOSIN
     Indication: BENIGN PROSTATIC HYPERPLASIA
     Route: 048
     Dates: start: 20200504, end: 20200511

REACTIONS (5)
  - Loss of consciousness [None]
  - Heart rate decreased [None]
  - Cognitive disorder [None]
  - Seizure [None]
  - Blood pressure decreased [None]

NARRATIVE: CASE EVENT DATE: 20200511
